FAERS Safety Report 5093262-1 (Version None)
Quarter: 2006Q3

REPORT INFORMATION
  Report Type: 
  Country: None (occurrence: None)
  Receive Date: 20060828
  Receipt Date: 20060818
  Transmission Date: 20061208
  Serious: Yes (Hospitalization)
  Sender: FDA-Public Use
  Company Number: 2006BI011741

PATIENT
  Age: 60 Year
  Sex: Female

DRUGS (4)
  1. AVONEX [Suspect]
     Indication: MULTIPLE SCLEROSIS
     Dosage: 30 UG; QW; IM
     Route: 030
     Dates: start: 20020101, end: 20030801
  2. AVONEX [Suspect]
     Indication: MULTIPLE SCLEROSIS
     Dosage: 30 UG; QW; IM
     Route: 030
     Dates: start: 20030801, end: 20060401
  3. NEXIUM [Concomitant]
  4. PRILOSEC [Concomitant]

REACTIONS (9)
  - ARTHROPATHY [None]
  - BLADDER DISORDER [None]
  - CARPAL TUNNEL SYNDROME [None]
  - CONDITION AGGRAVATED [None]
  - FIBROMYALGIA [None]
  - HYPERTENSION [None]
  - MUSCLE ATROPHY [None]
  - OSTEOARTHRITIS [None]
  - WRIST SURGERY [None]
